FAERS Safety Report 7704720-2 (Version None)
Quarter: 2011Q3

REPORT INFORMATION
  Report Type: 
  Country: None (occurrence: None)
  Receive Date: 20110823
  Receipt Date: 20110812
  Transmission Date: 20111222
  Serious: Yes (Other)
  Sender: FDA-Public Use
  Company Number: PHHY2011JP73470

PATIENT
  Age: 14 Year
  Sex: Female

DRUGS (7)
  1. CISPLATIN [Suspect]
     Indication: MEDULLOBLASTOMA
     Dates: start: 20090401
  2. METHOTREXATE [Suspect]
     Route: 037
     Dates: start: 20090401
  3. RADIOTHERAPY [Suspect]
  4. ETOPOSIDE [Suspect]
     Indication: MEDULLOBLASTOMA
     Dates: start: 20090401
  5. CYCLOPHOSPHAMIDE [Suspect]
     Indication: MEDULLOBLASTOMA
     Dates: start: 20090401
  6. VINCRISTINE [Suspect]
     Indication: MEDULLOBLASTOMA
     Dates: start: 20090401
  7. DEXAMETHASONE [Suspect]
     Indication: MEDULLOBLASTOMA
     Dates: start: 20090401

REACTIONS (12)
  - EPSTEIN-BARR VIRUS ASSOCIATED LYMPHOPROLIFERATIVE DISORDER [None]
  - VOMITING [None]
  - LARGE INTESTINAL ULCER [None]
  - ABDOMINAL PAIN [None]
  - VIITH NERVE PARALYSIS [None]
  - GASTRIC MUCOSAL LESION [None]
  - SPEECH DISORDER [None]
  - PYREXIA [None]
  - CYTOMEGALOVIRUS INFECTION [None]
  - LYMPHOPENIA [None]
  - ENCEPHALITIS VIRAL [None]
  - RASH [None]
